FAERS Safety Report 9055505 (Version 3)
Quarter: 2013Q2

REPORT INFORMATION
  Report Type: Spontaneous
  Country: US (occurrence: US)
  Receive Date: 20130206
  Receipt Date: 20130412
  Transmission Date: 20140414
  Serious: Yes (Hospitalization, Other)
  Sender: FDA-Public Use
  Company Number: US-GLAXOSMITHKLINE-A1008048A

PATIENT
  Age: 13 Year
  Sex: Male
  Weight: 82 kg

DRUGS (2)
  1. FLOLAN [Suspect]
     Indication: PRODUCT USED FOR UNKNOWN INDICATION
     Dosage: 67.6NGKM CONTINUOUS
     Route: 042
     Dates: start: 20110812
  2. FLOLAN DILUENT [Suspect]
     Indication: PRODUCT USED FOR UNKNOWN INDICATION
     Route: 042
     Dates: start: 20110812

REACTIONS (7)
  - Staphylococcal infection [Recovered/Resolved]
  - Adverse event [Recovered/Resolved]
  - Medical device complication [Recovered/Resolved]
  - Medical device change [Recovered/Resolved]
  - Headache [Recovered/Resolved]
  - Blood culture positive [Recovered/Resolved]
  - Infection [Recovered/Resolved]
